FAERS Safety Report 12156341 (Version 1)
Quarter: 2016Q1

REPORT INFORMATION
  Report Type: Spontaneous
  Country: CN (occurrence: CN)
  Receive Date: 20160307
  Receipt Date: 20160307
  Transmission Date: 20160526
  Serious: Yes (Other)
  Sender: FDA-Public Use
  Company Number: CN-ELI_LILLY_AND_COMPANY-CN201603000669

PATIENT
  Age: 68 Year
  Sex: Male

DRUGS (3)
  1. CETUXIMAB [Suspect]
     Active Substance: CETUXIMAB
     Indication: PENILE SQUAMOUS CELL CARCINOMA
     Dosage: 800 MG, CYCLICAL
     Route: 065
  2. PACLITAXEL. [Suspect]
     Active Substance: PACLITAXEL
     Indication: PENILE SQUAMOUS CELL CARCINOMA
     Dosage: 210 MG, CYCLICAL
     Route: 065
  3. CISPLATIN. [Suspect]
     Active Substance: CISPLATIN
     Indication: PENILE SQUAMOUS CELL CARCINOMA
     Dosage: 30 MG, CYCLICAL
     Route: 065

REACTIONS (4)
  - Metastases to lymph nodes [Unknown]
  - Neoplasm recurrence [Unknown]
  - Dermatitis acneiform [Unknown]
  - Off label use [Unknown]
